FAERS Safety Report 4509524-X (Version None)
Quarter: 2004Q4

REPORT INFORMATION
  Report Type: 
  Country: None (occurrence: None)
  Receive Date: 20041119
  Receipt Date: 20041111
  Transmission Date: 20050328
  Serious: Yes (Hospitalization)
  Sender: FDA-Public Use
  Company Number: 2004UW19601

PATIENT
  Age: 17 Year
  Sex: Male
  Weight: 70.7611 kg

DRUGS (6)
  1. DIPRIVAN [Suspect]
     Indication: SEDATION
     Dosage: 1 %
     Dates: start: 20040521, end: 20040521
  2. CEFAZOLIN [Concomitant]
  3. FENTANYL [Concomitant]
  4. LIDOCAINE [Concomitant]
  5. MIDAZOLAM HCL [Concomitant]
  6. MORPHINE [Concomitant]

REACTIONS (1)
  - ACUTE PULMONARY OEDEMA [None]
